FAERS Safety Report 6883423-0 (Version None)
Quarter: 2010Q3

REPORT INFORMATION
  Report Type: 
  Country: None (occurrence: None)
  Receive Date: 20100729
  Receipt Date: 20100721
  Transmission Date: 20110219
  Serious: Yes (Death, Hospitalization)
  Sender: FDA-Public Use
  Company Number: US-CELGENEUS-163-21880-10071964

PATIENT
  Sex: Male

DRUGS (5)
  1. REVLIMID [Suspect]
     Indication: MYELODYSPLASTIC SYNDROME
     Route: 048
     Dates: start: 20070516
  2. REVLIMID [Suspect]
     Route: 048
     Dates: start: 20071201
  3. REVLIMID [Suspect]
     Route: 048
     Dates: start: 20090301
  4. REVLIMID [Suspect]
     Route: 048
     Dates: start: 20100301
  5. REVLIMID [Suspect]
     Route: 048
     Dates: start: 20100701, end: 20100701

REACTIONS (2)
  - DEATH [None]
  - RENAL DISORDER [None]
